FAERS Safety Report 4994123-6 (Version None)
Quarter: 2006Q2

REPORT INFORMATION
  Report Type: 
  Country: None (occurrence: None)
  Receive Date: 20060505
  Receipt Date: 20060426
  Transmission Date: 20061013
  Serious: Yes (Other)
  Sender: FDA-Public Use
  Company Number: EE-ROCHE-445995

PATIENT
  Age: 25 Year
  Sex: Female
  Weight: 55 kg

DRUGS (1)
  1. ROACCUTANE [Suspect]
     Route: 048
     Dates: start: 20051116, end: 20060314

REACTIONS (3)
  - ABORTION INDUCED [None]
  - DRUG EXPOSURE DURING PREGNANCY [None]
  - PREGNANCY [None]
